FAERS Safety Report 4562618-5 (Version None)
Quarter: 2005Q1

REPORT INFORMATION
  Report Type: 
  Country: None (occurrence: None)
  Receive Date: 20050127
  Receipt Date: 20050121
  Transmission Date: 20050727
  Serious: Yes (Hospitalization)
  Sender: FDA-Public Use
  Company Number: PHBS2005JP01360

PATIENT
  Age: 75 Year
  Sex: Male

DRUGS (11)
  1. DIOVAN [Suspect]
     Dosage: 80 MG/DAY
     Route: 048
  2. DIOVAN [Suspect]
     Dosage: 80 + 40 MG/DAY
     Route: 048
  3. DIOVAN [Suspect]
     Dosage: 80 MG/DAY
     Route: 048
     Dates: end: 20050121
  4. PROTECADIN [Concomitant]
     Dosage: 10 MG, UNK
     Route: 048
  5. EUGLUCON [Concomitant]
     Dosage: 1.25 MG, UNK
     Route: 048
  6. EUGLUCON [Concomitant]
     Dosage: 5 MG, UNK
     Route: 048
  7. NORVASC [Concomitant]
     Dosage: 10 MG, UNK
     Route: 048
  8. FLIVAS [Concomitant]
     Dosage: 50 MG, UNK
     Route: 048
  9. CARDENALIN [Concomitant]
     Dosage: 4 MG, UNK
     Route: 048
  10. PERSANTIN [Concomitant]
     Dosage: 7.5 MG, UNK
     Route: 048
  11. SERMION [Concomitant]
     Dosage: 15 MG, UNK
     Route: 048

REACTIONS (3)
  - BLOOD CREATININE INCREASED [None]
  - BLOOD POTASSIUM INCREASED [None]
  - CEREBRAL INFARCTION [None]
